FAERS Safety Report 6816211-1 (Version None)
Quarter: 2010Q3

REPORT INFORMATION
  Report Type: 
  Country: None (occurrence: None)
  Receive Date: 20100705
  Receipt Date: 20100623
  Transmission Date: 20110219
  Serious: Yes (Other)
  Sender: FDA-Public Use
  Company Number: JP-BRISTOL-MYERS SQUIBB COMPANY-15172240

PATIENT
  Age: 42 Year
  Sex: Female

DRUGS (3)
  1. TAXOL [Suspect]
     Indication: BREAST CANCER
     Route: 041
  2. DOXORUBICIN HCL [Suspect]
     Indication: ADJUVANT THERAPY
  3. CYCLOPHOSPHAMIDE [Suspect]
     Indication: ADJUVANT THERAPY

REACTIONS (1)
  - AMENORRHOEA [None]
